FAERS Safety Report 16180590 (Version 1)
Quarter: 2019Q2

REPORT INFORMATION
  Report Type: Spontaneous
  Country: NZ (occurrence: NZ)
  Receive Date: 20190410
  Receipt Date: 20190410
  Transmission Date: 20190711
  Serious: Yes (Hospitalization, Other)
  Sender: FDA-Public Use
  Company Number: NZ-INCYTE CORPORATION-2019IN003577

PATIENT

DRUGS (5)
  1. JAKAVI [Suspect]
     Active Substance: RUXOLITINIB
     Dosage: 5 MG, BID
     Route: 065
  2. JAKAVI [Suspect]
     Active Substance: RUXOLITINIB
     Indication: MYELOFIBROSIS
     Dosage: UNK
     Route: 065
  3. TRANEXAMIC ACID. [Suspect]
     Active Substance: TRANEXAMIC ACID
     Indication: PRODUCT USED FOR UNKNOWN INDICATION
     Dosage: UNK
     Route: 065
  4. JAKAVI [Suspect]
     Active Substance: RUXOLITINIB
     Dosage: 10 MG, BID
     Route: 065
     Dates: start: 20190123
  5. JAKAVI [Suspect]
     Active Substance: RUXOLITINIB
     Dosage: 5 MG, BID
     Route: 065

REACTIONS (12)
  - Haemorrhage [Unknown]
  - Anaemia [Unknown]
  - Fibrosis [Unknown]
  - Thrombocytopenia [Unknown]
  - Musculoskeletal chest pain [Unknown]
  - Renal impairment [Unknown]
  - Chest wall haematoma [Unknown]
  - Megakaryocytes abnormal [Unknown]
  - Marrow hyperplasia [Unknown]
  - Granulocytes abnormal [Unknown]
  - Haematoma [Unknown]
  - Weight increased [Unknown]

NARRATIVE: CASE EVENT DATE: 20190203
